FAERS Safety Report 18227902 (Version 1)
Quarter: 2020Q3

REPORT INFORMATION
  Report Type: Spontaneous
  Country: US (occurrence: US)
  Receive Date: 20200903
  Receipt Date: 20200903
  Transmission Date: 20201103
  Serious: Yes (Hospitalization, Other)
  Sender: FDA-Public Use
  Company Number: None

PATIENT
  Age: 51 Year
  Sex: Female
  Weight: 114.3 kg

DRUGS (1)
  1. FERAHEME [Suspect]
     Active Substance: FERUMOXYTOL NON-STOICHIOMETRIC MAGNETITE
     Indication: IRON DEFICIENCY ANAEMIA
     Dosage: ?          OTHER FREQUENCY:WEEKLY X 2;?
     Route: 041
     Dates: start: 20200821, end: 20200831

REACTIONS (5)
  - Infusion related reaction [None]
  - Back pain [None]
  - Anxiety [None]
  - Obstructive airways disorder [None]
  - Dyspnoea [None]

NARRATIVE: CASE EVENT DATE: 20200831
